FAERS Safety Report 19720131 (Version 2)
Quarter: 2021Q3

REPORT INFORMATION
  Report Type: Report from Study
  Country: US (occurrence: US)
  Receive Date: 20210818
  Receipt Date: 20210824
  Transmission Date: 20211014
  Serious: No
  Sender: FDA-Public Use
  Company Number: US-DSJP-DSU-2021-125506

PATIENT
  Sex: Female

DRUGS (1)
  1. PEXIDARTINIB [Suspect]
     Active Substance: PEXIDARTINIB
     Indication: MALIGNANT CONNECTIVE TISSUE NEOPLASM
     Dosage: 400 MG, BID
     Route: 048
     Dates: start: 20210807

REACTIONS (10)
  - Hepatic enzyme increased [Recovered/Resolved]
  - Skin hypopigmentation [Recovered/Resolved]
  - Paraesthesia [Recovered/Resolved]
  - Insomnia [Recovered/Resolved]
  - Fatigue [Recovered/Resolved]
  - Steatorrhoea [Recovered/Resolved]
  - Daydreaming [Recovered/Resolved]
  - Sleep disorder [Recovered/Resolved]
  - Accidental underdose [Recovered/Resolved]
  - Pruritus [Recovered/Resolved]
